FAERS Safety Report 5321921-1 (Version None)
Quarter: 2007Q2

REPORT INFORMATION
  Report Type: 
  Country: None (occurrence: None)
  Receive Date: 20070508
  Receipt Date: 20070508
  Transmission Date: 20071010
  Serious: No
  Sender: FDA-Public Use
  Company Number: None

PATIENT
  Age: 25 Year
  Sex: Male

DRUGS (1)
  1. TUBERSOL [Suspect]
     Dosage: LFA-ID
     Route: 023

REACTIONS (2)
  - ERYTHEMA [None]
  - FEELING HOT [None]
